FAERS Safety Report 17572256 (Version 1)
Quarter: 2020Q1

REPORT INFORMATION
  Report Type: Spontaneous
  Country: IN (occurrence: IN)
  Receive Date: 20200323
  Receipt Date: 20200323
  Transmission Date: 20200409
  Serious: Yes (Life-Threatening, Hospitalization, Disabling)
  Sender: FDA-Public Use
  Company Number: None

PATIENT
  Age: 51 Year
  Sex: Female
  Weight: 98 kg

DRUGS (1)
  1. DIENOGEST 2 MG DINOFIRST [Suspect]
     Active Substance: DIENOGEST
     Indication: ADENOMYOSIS
     Dosage: ?          QUANTITY:1 TABLET(S);?

REACTIONS (4)
  - Thyroid calcification [None]
  - Osteoma [None]
  - Hypertension [None]
  - Papillary thyroid cancer [None]
